FAERS Safety Report 16346282 (Version 2)
Quarter: 2019Q2

REPORT INFORMATION
  Report Type: Spontaneous
  Country: US (occurrence: US)
  Receive Date: 20190523
  Receipt Date: 20190618
  Transmission Date: 20190711
  Serious: No
  Sender: FDA-Public Use
  Company Number: US-PFIZER INC-2019219217

PATIENT
  Age: 66 Year
  Sex: Female
  Weight: 47 kg

DRUGS (1)
  1. GABAPENTIN. [Suspect]
     Active Substance: GABAPENTIN
     Indication: NEUROPATHY PERIPHERAL
     Dosage: 20 MG, 1X/DAY
     Route: 048
     Dates: start: 2018

REACTIONS (1)
  - Malaise [Unknown]
